FAERS Safety Report 4608778-9 (Version None)
Quarter: 2005Q1

REPORT INFORMATION
  Report Type: 
  Country: None (occurrence: None)
  Receive Date: 20050315
  Receipt Date: 20050310
  Transmission Date: 20050727
  Serious: Yes (Hospitalization)
  Sender: FDA-Public Use
  Company Number: US-JNJFOC-20050302978

PATIENT
  Age: 60 Year
  Sex: Female

DRUGS (12)
  1. DURAGESIC-100 [Suspect]
     Route: 062
  2. GABITRIL [Concomitant]
     Indication: DEPRESSION
     Route: 049
  3. WELLBUTRIN [Concomitant]
     Indication: DEPRESSION
     Route: 049
  4. RITALIN [Concomitant]
     Indication: ATTENTION DEFICIT/HYPERACTIVITY DISORDER
     Route: 049
  5. ADDERALL 10 [Concomitant]
     Route: 049
  6. ADDERALL 10 [Concomitant]
     Route: 049
  7. ADDERALL 10 [Concomitant]
     Route: 049
  8. ADDERALL 10 [Concomitant]
     Indication: ATTENTION DEFICIT/HYPERACTIVITY DISORDER
     Route: 049
  9. PERCOCET [Concomitant]
     Route: 049
  10. PERCOCET [Concomitant]
     Indication: PAIN
     Route: 049
  11. CYMBALTA [Concomitant]
     Indication: DEPRESSION
     Route: 049
  12. NEXIUM [Concomitant]
     Route: 049

REACTIONS (2)
  - HAEMATEMESIS [None]
  - OESOPHAGEAL RUPTURE [None]
